FAERS Safety Report 5271504-7 (Version None)
Quarter: 2007Q1

REPORT INFORMATION
  Report Type: 
  Country: None (occurrence: None)
  Receive Date: 20070316
  Receipt Date: 20070306
  Transmission Date: 20070707
  Serious: Yes (Death)
  Sender: FDA-Public Use
  Company Number: 07-000509

PATIENT
  Age: 31 Year
  Sex: Female

DRUGS (5)
  1. DORYX [Suspect]
     Indication: MASS
     Dosage: UNK, UNK, ORAL
     Route: 048
  2. DORYX [Suspect]
     Indication: PYREXIA
     Dosage: UNK, UNK, ORAL
     Route: 048
  3. MODAFINIL [Suspect]
     Indication: MULTIPLE SCLEROSIS
  4. STEROID ANTIBACTERIALS () [Suspect]
     Indication: OEDEMA
  5. STEROID ANTIBACTERIALS () [Suspect]
     Indication: RASH

REACTIONS (8)
  - HYPERSENSITIVITY [None]
  - MASS [None]
  - MUSCLE NECROSIS [None]
  - MYOCARDIAL INFARCTION [None]
  - MYOCARDITIS [None]
  - PERICARDIAL EFFUSION [None]
  - SINUS TACHYCARDIA [None]
  - VENTRICULAR TACHYARRHYTHMIA [None]
